FAERS Safety Report 5142255-4 (Version None)
Quarter: 2006Q4

REPORT INFORMATION
  Report Type: 
  Country: None (occurrence: None)
  Receive Date: 20061102
  Receipt Date: 20061027
  Transmission Date: 20070319
  Serious: Yes (Life-Threatening, Hospitalization, Disabling, Other)
  Sender: FDA-Public Use
  Company Number: MX-MERCK-0610MEX00040

PATIENT
  Age: 64 Year
  Sex: Female

DRUGS (6)
  1. JANUVIA [Suspect]
     Indication: DIABETES MELLITUS NON-INSULIN-DEPENDENT
     Route: 065
     Dates: start: 20060901, end: 20061001
  2. HYDROCHLOROTHIAZIDE AND TELMISARTAN [Concomitant]
     Indication: HYPERTENSION
     Route: 065
  3. ASPIRIN [Concomitant]
     Indication: PROPHYLAXIS
     Route: 065
  4. INSULIN [Concomitant]
     Indication: DIABETES MELLITUS NON-INSULIN-DEPENDENT
     Route: 065
  5. OMEPRAZOLE [Concomitant]
     Indication: GASTRITIS
     Route: 065
  6. PINAVERIUM BROMIDE [Concomitant]
     Indication: IRRITABLE BOWEL SYNDROME
     Route: 065

REACTIONS (3)
  - ARRHYTHMIA [None]
  - MYALGIA [None]
  - RENAL FAILURE ACUTE [None]
